FAERS Safety Report 5875488-X (Version None)
Quarter: 2008Q3

REPORT INFORMATION
  Report Type: 
  Country: None (occurrence: None)
  Receive Date: 20080909
  Receipt Date: 20080905
  Transmission Date: 20090109
  Serious: Yes (Other)
  Sender: FDA-Public Use
  Company Number: IE-WYE-G01577808

PATIENT
  Sex: Female

DRUGS (5)
  1. EFFEXOR [Suspect]
     Indication: DEPRESSION
     Route: 048
     Dates: start: 20060320, end: 20060329
  2. EFFEXOR [Suspect]
     Route: 048
     Dates: start: 20060330, end: 20060510
  3. EFFEXOR [Suspect]
     Route: 048
     Dates: start: 20060511, end: 20060712
  4. EFFEXOR [Suspect]
     Dates: start: 20060713, end: 20060803
  5. XANAX [Concomitant]
     Dosage: 0.25 MG (FREQUENCY UNKNOWN)
     Route: 048

REACTIONS (1)
  - CARDIAC FAILURE [None]
